FAERS Safety Report 4927220-1 (Version None)
Quarter: 2006Q1

REPORT INFORMATION
  Report Type: 
  Country: None (occurrence: None)
  Receive Date: 20060228
  Receipt Date: 20050204
  Transmission Date: 20060701
  Serious: No
  Sender: FDA-Public Use
  Company Number: US-GLAXOSMITHKLINE-A0544006A

PATIENT
  Age: 61 Year
  Sex: Male

DRUGS (4)
  1. IMITREX [Suspect]
     Indication: MIGRAINE
     Dosage: 6MG AS REQUIRED
     Route: 058
  2. BLOOD PRESSURE MEDICATION [Concomitant]
  3. CHOLESTEROL REDUCING AGENT NAME NOT KNOWN [Concomitant]
  4. ANTIDEPRESSANT [Concomitant]

REACTIONS (2)
  - INJECTION SITE PAIN [None]
  - PHARMACEUTICAL PRODUCT COMPLAINT [None]
